FAERS Safety Report 15607641 (Version 2)
Quarter: 2019Q1

REPORT INFORMATION
  Report Type: Spontaneous
  Country: HR (occurrence: HR)
  Receive Date: 20181112
  Receipt Date: 20190227
  Transmission Date: 20190417
  Serious: Yes (Other)
  Sender: FDA-Public Use
  Company Number: HR-JNJFOC-20181109600

PATIENT
  Age: 74 Year
  Sex: Male

DRUGS (6)
  1. IMBRUVICA [Suspect]
     Active Substance: IBRUTINIB
     Indication: CHRONIC LYMPHOCYTIC LEUKAEMIA
     Route: 048
     Dates: start: 20171027, end: 2018
  2. CONTROLOC [Concomitant]
     Active Substance: PANTOPRAZOLE SODIUM
     Route: 065
  3. NORPREXANIL [Concomitant]
     Active Substance: UNSPECIFIED INGREDIENT
     Route: 065
  4. METOCLOPRAMIDE. [Concomitant]
     Active Substance: METOCLOPRAMIDE
     Route: 065
  5. OXAZEPAM. [Concomitant]
     Active Substance: OXAZEPAM
     Route: 065
  6. ROSWERA [Concomitant]
     Active Substance: ROSUVASTATIN
     Route: 065

REACTIONS (1)
  - Cerebrovascular accident [Recovered/Resolved]

NARRATIVE: CASE EVENT DATE: 201711
